FAERS Safety Report 8287387-7 (Version None)
Quarter: 2012Q2

REPORT INFORMATION
  Report Type: 
  Country: None (occurrence: None)
  Receive Date: 20120416
  Receipt Date: 20120411
  Transmission Date: 20120825
  Serious: Yes (Hospitalization)
  Sender: FDA-Public Use
  Company Number: IT-PFIZER INC-2012090854

PATIENT
  Age: 58 Year
  Sex: Female

DRUGS (9)
  1. IRINOTECAN HCL [Suspect]
     Indication: PANCREATIC CARCINOMA
     Dosage: 270 MG, TOTAL DOSE
     Route: 042
     Dates: start: 20120123, end: 20120123
  2. OXYCODONE HCL AND ACETAMINOPHEN [Concomitant]
     Indication: PAIN
     Dosage: 5 MG + 325 MG, 1 DOSAGE UNIT
     Route: 048
  3. ASPIRIN [Concomitant]
     Indication: CARDIOVASCULAR EVENT PROPHYLAXIS
     Dosage: 1 DOSAGE UNIT
     Route: 048
  4. MOVIPREP [Concomitant]
     Indication: CONSTIPATION
     Dosage: 13.8 G, 1 DOSAGE UNIT
     Route: 048
  5. LEUCOVORIN CALCIUM [Suspect]
     Indication: PANCREATIC CARCINOMA
     Dosage: 300 DOSAGE UNITS, TOTAL
     Route: 042
     Dates: start: 20120123, end: 20120123
  6. OXALIPLATIN [Suspect]
     Indication: PANCREATIC CARCINOMA
     Dosage: 125 MG, TOTAL DOSE
     Route: 042
     Dates: start: 20120123, end: 20120123
  7. OXYCONTIN [Concomitant]
     Indication: PAIN
     Dosage: 1 DOSAGE UNIT
     Route: 048
  8. FLUOROURACIL [Suspect]
     Indication: PANCREATIC CARCINOMA
     Dosage: 4200 MG, TOTAL DOSE
     Route: 048
     Dates: start: 20120123, end: 20120123
  9. INDERAL [Concomitant]
     Indication: HYPERTENSION
     Dosage: 1 DOSAGE UNIT
     Route: 048

REACTIONS (4)
  - DIARRHOEA [None]
  - ORAL CANDIDIASIS [None]
  - VOMITING [None]
  - LEUKOPENIA [None]
